FAERS Safety Report 12485491 (Version 1)
Quarter: 2016Q2

REPORT INFORMATION
  Report Type: Spontaneous
  Country: US (occurrence: US)
  Receive Date: 20160621
  Receipt Date: 20160621
  Transmission Date: 20160815
  Serious: No
  Sender: FDA-Public Use
  Company Number: US-SA-2016SA053696

PATIENT
  Sex: Female

DRUGS (1)
  1. CEREZYME [Suspect]
     Active Substance: IMIGLUCERASE
     Route: 041
     Dates: start: 20021202, end: 20090421

REACTIONS (6)
  - Influenza like illness [Unknown]
  - Infusion site warmth [Unknown]
  - Peripheral swelling [Unknown]
  - Contusion [Unknown]
  - Erythema [Unknown]
  - Dermatitis contact [Unknown]
